FAERS Safety Report 4321127-9 (Version None)
Quarter: 2004Q1

REPORT INFORMATION
  Report Type: 
  Country: None (occurrence: None)
  Receive Date: 20040322
  Receipt Date: 20040309
  Transmission Date: 20041129
  Serious: Yes (Other)
  Sender: FDA-Public Use
  Company Number: GB-GLAXOSMITHKLINE-B0326330A

PATIENT
  Age: 30 Year
  Sex: Female

DRUGS (2)
  1. COMBIVIR [Suspect]
     Indication: HIV INFECTION
     Route: 048
     Dates: start: 20031124
  2. VIRAMUNE [Suspect]
     Indication: HIV INFECTION
     Dosage: 200MG TWICE PER DAY
     Route: 048
     Dates: start: 20031124

REACTIONS (1)
  - HEPATOTOXICITY [None]
